FAERS Safety Report 5722623-X (Version None)
Quarter: 2008Q2

REPORT INFORMATION
  Report Type: 
  Country: None (occurrence: None)
  Receive Date: 20080429
  Receipt Date: 20070815
  Transmission Date: 20081010
  Serious: No
  Sender: FDA-Public Use
  Company Number: US-ASTRAZENECA-2007UW19809

PATIENT
  Age: 88 Year
  Sex: Male

DRUGS (5)
  1. NEXIUM [Suspect]
     Route: 048
     Dates: start: 20040801
  2. HYDROCHLOROTHIAZIDE [Concomitant]
  3. ZESTRIL [Concomitant]
  4. PRAVACHOL [Concomitant]
  5. PLAVIX [Concomitant]

REACTIONS (1)
  - GLAUCOMA [None]
